FAERS Safety Report 18109328 (Version 1)
Quarter: 2020Q3

REPORT INFORMATION
  Report Type: Spontaneous
  Country: US (occurrence: US)
  Receive Date: 20200804
  Receipt Date: 20200804
  Transmission Date: 20201103
  Serious: No
  Sender: FDA-Public Use
  Company Number: None

PATIENT
  Age: 61 Year
  Sex: Female
  Weight: 81.65 kg

DRUGS (1)
  1. SAPPHIRE HAND SANITIZER (ETHYL ALCOHOL) [Suspect]
     Active Substance: ALCOHOL

REACTIONS (1)
  - Nausea [None]

NARRATIVE: CASE EVENT DATE: 20200803
